FAERS Safety Report 21574541 (Version 1)
Quarter: 2022Q4

REPORT INFORMATION
  Report Type: Report from Study
  Country: US (occurrence: US)
  Receive Date: 20221109
  Receipt Date: 20221109
  Transmission Date: 20230112
  Serious: No
  Sender: FDA-Public Use
  Company Number: US-ABBVIE-4135175

PATIENT
  Sex: Female

DRUGS (3)
  1. HUMIRA [Suspect]
     Active Substance: ADALIMUMAB
     Indication: Rheumatoid arthritis
     Dosage: FORM STRENGTH: 40 MILLIGRAM?40MG/0.4ML
     Route: 058
  2. Moderna covid-19 vaccination [Concomitant]
     Indication: COVID-19 immunisation
     Dosage: COVID VACCINE DOSE?ONE IN ONCE
     Route: 030
  3. Moderna covid-19 vaccination [Concomitant]
     Indication: COVID-19 immunisation
     Dosage: COVID BOOSTER DOSE?ONE IN ONCE
     Route: 030

REACTIONS (5)
  - Joint stiffness [Recovering/Resolving]
  - Musculoskeletal stiffness [Recovering/Resolving]
  - Gait disturbance [Unknown]
  - Arthralgia [Recovering/Resolving]
  - Pain [Unknown]
